FAERS Safety Report 17272549 (Version 1)
Quarter: 2020Q1

REPORT INFORMATION
  Report Type: Report from Study
  Country: US (occurrence: US)
  Receive Date: 20200115
  Receipt Date: 20200115
  Transmission Date: 20200409
  Serious: Yes (Death, Hospitalization)
  Sender: FDA-Public Use
  Company Number: US-BAYER-2020-004996

PATIENT
  Age: 80 Year
  Sex: Male

DRUGS (2)
  1. ASPIRIN. [Suspect]
     Active Substance: ASPIRIN
     Dosage: UNK
  2. CLOPIDOGREL [Interacting]
     Active Substance: CLOPIDOGREL BISULFATE

REACTIONS (6)
  - Neurological decompensation [Fatal]
  - Labelled drug-drug interaction medication error [Fatal]
  - Paresis [Fatal]
  - Monoplegia [Fatal]
  - Hemiplegia [Fatal]
  - Subdural haematoma [Fatal]
